FAERS Safety Report 17398811 (Version 2)
Quarter: 2020Q1

REPORT INFORMATION
  Report Type: Spontaneous
  Country: JP (occurrence: JP)
  Receive Date: 20200210
  Receipt Date: 20200226
  Transmission Date: 20200409
  Serious: Yes (Other)
  Sender: FDA-Public Use
  Company Number: JP-SEATTLE GENETICS-2019SGN00052

PATIENT
  Age: 28 Year
  Sex: Male
  Weight: 59.2 kg

DRUGS (13)
  1. DAIPHEN [Concomitant]
     Active Substance: SULFAMETHOXAZOLE\TRIMETHOPRIM
     Indication: PROPHYLAXIS
     Dosage: 1 DOSAGE FORM, QD
     Route: 048
     Dates: start: 20181216
  2. ITRACONAZOLE. [Concomitant]
     Active Substance: ITRACONAZOLE
     Indication: PROPHYLAXIS
     Dosage: 50 MILLIGRAM, QD
     Route: 048
     Dates: start: 20181216, end: 20190822
  3. DOXORUBICIN HYDROCHLORIDE. [Suspect]
     Active Substance: DOXORUBICIN HYDROCHLORIDE
     Indication: PRODUCT USED FOR UNKNOWN INDICATION
     Dosage: 42 MILLIGRAM, Q3WEEKS
     Route: 041
     Dates: start: 20181217, end: 20190514
  4. POLARAMINE [Concomitant]
     Active Substance: DEXCHLORPHENIRAMINE MALEATE
     Dosage: 5 MILLIGRAM, Q3WEEKS
     Route: 041
     Dates: start: 20181217, end: 20190514
  5. FILGRASTIM BS [Concomitant]
     Active Substance: FILGRASTIM
     Dosage: UNK
     Route: 058
     Dates: start: 20190110, end: 20190119
  6. DACARBAZINE. [Suspect]
     Active Substance: DACARBAZINE
     Indication: PRODUCT USED FOR UNKNOWN INDICATION
     Dosage: 425 MILLIGRAM, Q3WEEKS
     Route: 041
     Dates: start: 20181217, end: 20190514
  7. VINBLASTINE SULFATE. [Suspect]
     Active Substance: VINBLASTINE SULFATE
     Indication: PRODUCT USED FOR UNKNOWN INDICATION
     Dosage: 10 MILLIGRAM, Q3WEEKS
     Route: 041
     Dates: start: 20181217, end: 20190514
  8. FEBURIC [Concomitant]
     Active Substance: FEBUXOSTAT
     Indication: PROPHYLAXIS
     Dosage: 20 MILLIGRAM, QD
     Route: 048
     Dates: start: 20181216, end: 20190520
  9. METHYLPREDNISOLONE. [Concomitant]
     Active Substance: METHYLPREDNISOLONE
     Dosage: 80 MILLIGRAM, Q3WEEKS
     Route: 041
     Dates: start: 20181217, end: 20190514
  10. FAMOTIDINE. [Concomitant]
     Active Substance: FAMOTIDINE
     Indication: PROPHYLAXIS
     Dosage: 20 MILLIGRAM, QD
     Route: 048
     Dates: start: 20181210
  11. ADCETRIS [Suspect]
     Active Substance: BRENTUXIMAB VEDOTIN
     Indication: HODGKIN^S DISEASE
     Dosage: 70 MILLIGRAM
     Route: 041
     Dates: start: 20181217, end: 20190514
  12. FEXOFENADINE HYDROCHLORIDE. [Concomitant]
     Active Substance: FEXOFENADINE HYDROCHLORIDE
     Indication: RHINITIS ALLERGIC
     Dosage: 60 MILLIGRAM, BID
     Route: 048
     Dates: start: 20181210
  13. FILGRASTIM BS [Concomitant]
     Active Substance: FILGRASTIM
     Indication: PROPHYLAXIS
     Dosage: UNK
     Route: 058
     Dates: start: 20181219

REACTIONS (4)
  - White blood cell count decreased [Recovered/Resolved]
  - Neuropathy peripheral [Recovered/Resolved]
  - Pyrexia [Recovered/Resolved]
  - Neutropenia [Recovered/Resolved]

NARRATIVE: CASE EVENT DATE: 20181221
